FAERS Safety Report 21323355 (Version 1)
Quarter: 2022Q3

REPORT INFORMATION
  Report Type: Report from Study
  Country: CO (occurrence: CO)
  Receive Date: 20220912
  Receipt Date: 20220912
  Transmission Date: 20221027
  Serious: Yes (Hospitalization)
  Sender: FDA-Public Use
  Company Number: CO-ABBVIE-22K-036-4535319-00

PATIENT
  Sex: Female
  Weight: 82 kg

DRUGS (2)
  1. HUMIRA [Suspect]
     Active Substance: ADALIMUMAB
     Indication: Product used for unknown indication
     Route: 058
     Dates: start: 20111116
  2. HUMIRA [Suspect]
     Active Substance: ADALIMUMAB
     Indication: Colitis ulcerative
     Dosage: CITRATE FREE
     Route: 058

REACTIONS (10)
  - Blood potassium decreased [Recovered/Resolved]
  - Gait disturbance [Not Recovered/Not Resolved]
  - Slow speech [Not Recovered/Not Resolved]
  - Paralysis [Not Recovered/Not Resolved]
  - Feeding disorder [Unknown]
  - General physical health deterioration [Recovered/Resolved]
  - Sputum discoloured [Unknown]
  - Fall [Unknown]
  - Pyrexia [Recovered/Resolved]
  - Pain [Recovered/Resolved]

NARRATIVE: CASE EVENT DATE: 20220101
